FAERS Safety Report 9925928 (Version 2)
Quarter: 2014Q2

REPORT INFORMATION
  Report Type: Spontaneous
  Country: US (occurrence: US)
  Receive Date: 20140226
  Receipt Date: 20140515
  Transmission Date: 20141212
  Serious: Yes (Other)
  Sender: FDA-Public Use
  Company Number: US-PFIZER INC-2014051121

PATIENT
  Age: 52 Year
  Sex: Male
  Weight: 74.83 kg

DRUGS (1)
  1. VIAGRA [Suspect]
     Indication: ERECTILE DYSFUNCTION
     Dosage: 50 MG (BY SPLITTING 100 MG IN TO HALF) AS NEEDED
     Route: 048
     Dates: start: 201008

REACTIONS (13)
  - Penile contusion [Unknown]
  - Dysuria [Unknown]
  - Urethral injury [Unknown]
  - Peyronie^s disease [Unknown]
  - Urethral pain [Unknown]
  - Scar [Unknown]
  - Urethral disorder [Unknown]
  - Vascular rupture [Unknown]
  - Penile pain [Unknown]
  - Penis injury [Unknown]
  - Urethral discharge [Unknown]
  - Dyspareunia [Unknown]
  - Muscle spasms [Unknown]
